FAERS Safety Report 8721696 (Version 4)
Quarter: 2015Q1

REPORT INFORMATION
  Report Type: Spontaneous
  Country: US (occurrence: US)
  Receive Date: 20120814
  Receipt Date: 20150113
  Transmission Date: 20150721
  Serious: Yes (Other)
  Sender: FDA-Public Use
  Company Number: US-SANOFI-AVENTIS-2012SA056393

PATIENT
  Age: 75 Year
  Sex: Male

DRUGS (11)
  1. NAPROXEN. [Concomitant]
     Active Substance: NAPROXEN
  2. GABAPENTIN. [Concomitant]
     Active Substance: GABAPENTIN
  3. PLAVIX [Suspect]
     Active Substance: CLOPIDOGREL BISULFATE
     Indication: STENT PLACEMENT
     Route: 048
     Dates: start: 2007
  4. GLUCOSAMINE [Concomitant]
     Active Substance: GLUCOSAMINE
  5. METFORMIN [Concomitant]
     Active Substance: METFORMIN HYDROCHLORIDE
  6. AMITRIPTYLINE [Concomitant]
     Active Substance: AMITRIPTYLINE
  7. GEMFIBROZIL. [Concomitant]
     Active Substance: GEMFIBROZIL
  8. TYLENOL [Concomitant]
     Active Substance: ACETAMINOPHEN
  9. NEXIUM [Interacting]
     Active Substance: ESOMEPRAZOLE MAGNESIUM
     Indication: PRODUCT USED FOR UNKNOWN INDICATION
     Route: 065
     Dates: start: 2007
  10. VITAMIN D [Concomitant]
     Active Substance: CHOLECALCIFEROL
  11. TUMS [Concomitant]
     Active Substance: CALCIUM CARBONATE

REACTIONS (22)
  - Emphysema [Unknown]
  - Drug interaction [Unknown]
  - Musculoskeletal discomfort [Not Recovered/Not Resolved]
  - Dysphagia [Not Recovered/Not Resolved]
  - Prostatic disorder [Unknown]
  - Visual impairment [Unknown]
  - Drug ineffective [Unknown]
  - Regurgitation [Not Recovered/Not Resolved]
  - Dizziness [Not Recovered/Not Resolved]
  - Headache [Not Recovered/Not Resolved]
  - Chest pain [Unknown]
  - Fall [Unknown]
  - Tinnitus [Not Recovered/Not Resolved]
  - Rotator cuff syndrome [Unknown]
  - Pain in extremity [Unknown]
  - Myocardial infarction [Unknown]
  - Arterial occlusive disease [Not Recovered/Not Resolved]
  - Interstitial lung disease [Unknown]
  - Aortic aneurysm [Not Recovered/Not Resolved]
  - Ligament rupture [Unknown]
  - Neck pain [Not Recovered/Not Resolved]
  - Dyspnoea [Not Recovered/Not Resolved]

NARRATIVE: CASE EVENT DATE: 2007
